FAERS Safety Report 8614981-3 (Version None)
Quarter: 2012Q3

REPORT INFORMATION
  Report Type: 
  Country: None (occurrence: None)
  Receive Date: 20120815
  Receipt Date: 20120815
  Transmission Date: 20120928
  Serious: Yes (Life-Threatening, Hospitalization, Disabling, Other)
  Sender: FDA-Public Use
  Company Number: None

PATIENT
  Sex: Male

DRUGS (1)
  1. CLOZAPINE [Suspect]
     Indication: SCHIZOPHRENIA
     Dosage: DAW 500MG QHS PAST 8 YEARS

REACTIONS (6)
  - VERTIGO [None]
  - HYPERPHAGIA [None]
  - DROOLING [None]
  - DECREASED ACTIVITY [None]
  - PRODUCT SUBSTITUTION ISSUE [None]
  - DIZZINESS [None]
